FAERS Safety Report 19211727 (Version 1)
Quarter: 2021Q2

REPORT INFORMATION
  Report Type: Spontaneous
  Country: US (occurrence: US)
  Receive Date: 20210504
  Receipt Date: 20210504
  Transmission Date: 20210717
  Serious: Yes (Other)
  Sender: FDA-Public Use
  Company Number: US-PFIZER INC-2021444911

PATIENT
  Age: 70 Year
  Sex: Male

DRUGS (3)
  1. INLYTA [Suspect]
     Active Substance: AXITINIB
     Indication: RENAL CANCER
     Dosage: 100 MILLIGRAM
     Route: 065
  2. ELIQUIS [Suspect]
     Active Substance: APIXABAN
     Indication: CEREBROVASCULAR ACCIDENT PROPHYLAXIS
  3. ELIQUIS [Suspect]
     Active Substance: APIXABAN
     Indication: PULMONARY EMBOLISM
     Dosage: UNK
     Route: 065
     Dates: end: 20210421

REACTIONS (2)
  - Clear cell renal cell carcinoma [Not Recovered/Not Resolved]
  - Weight decreased [Recovering/Resolving]

NARRATIVE: CASE EVENT DATE: 202103
